FAERS Safety Report 19503956 (Version 2)
Quarter: 2024Q1

REPORT INFORMATION
  Report Type: Spontaneous
  Country: CA (occurrence: CA)
  Receive Date: 20210707
  Receipt Date: 20240327
  Transmission Date: 20240410
  Serious: Yes (Other)
  Sender: FDA-Public Use
  Company Number: CA-PFIZER INC-2020398318

PATIENT
  Age: 58 Year
  Sex: Male
  Weight: 94.7 kg

DRUGS (8)
  1. SULFASALAZINE [Suspect]
     Active Substance: SULFASALAZINE
     Indication: Crohn^s disease
     Dosage: 1500 MG, 1X/DAY
     Route: 048
  2. SULFASALAZINE [Suspect]
     Active Substance: SULFASALAZINE
     Indication: Immunosuppressant drug therapy
  3. INFLECTRA [Concomitant]
     Active Substance: INFLIXIMAB-DYYB
     Indication: Crohn^s disease
     Dosage: 700 MG, CYCLIC, EVERY 6 WEEKS
     Route: 042
     Dates: start: 20191114
  4. INFLECTRA [Concomitant]
     Active Substance: INFLIXIMAB-DYYB
     Dosage: 700 MG, CYCLIC, EVERY 6 WEEKS
     Route: 042
     Dates: start: 20201013
  5. METOPROLOL [Concomitant]
     Active Substance: METOPROLOL
     Indication: Myocardial infarction
     Dosage: 25 MG, 1X/DAY
     Route: 048
  6. METOPROLOL [Concomitant]
     Active Substance: METOPROLOL
     Indication: Prophylaxis
  7. PLAVIX [Concomitant]
     Active Substance: CLOPIDOGREL BISULFATE
     Indication: Myocardial infarction
     Dosage: 1 DF, 1X/DAY
     Route: 048
  8. PLAVIX [Concomitant]
     Active Substance: CLOPIDOGREL BISULFATE
     Indication: Prophylaxis

REACTIONS (7)
  - Skin laceration [Unknown]
  - Nephrolithiasis [Recovering/Resolving]
  - Off label use [Unknown]
  - Anxiety [Unknown]
  - Depression [Unknown]
  - Dysuria [Unknown]
  - Renal pain [Unknown]

NARRATIVE: CASE EVENT DATE: 20210501
